FAERS Safety Report 6805490-2 (Version None)
Quarter: 2010Q2

REPORT INFORMATION
  Report Type: 
  Country: None (occurrence: None)
  Receive Date: 20100628
  Receipt Date: 20071210
  Transmission Date: 20101027
  Serious: No
  Sender: FDA-Public Use
  Company Number: US-PFIZER INC-2007103786

PATIENT
  Sex: Female
  Weight: 72.7 kg

DRUGS (16)
  1. GEODON [Suspect]
     Indication: OBSESSIVE-COMPULSIVE DISORDER
     Dates: start: 20071204
  2. ZOLOFT [Concomitant]
  3. ESKALITH - SLOW RELEASE [Concomitant]
  4. WELLBUTRIN SR [Concomitant]
  5. KLONOPIN [Concomitant]
  6. VITAMIN D [Concomitant]
  7. CYANOCOBALAMIN [Concomitant]
  8. VERAMYST [Concomitant]
  9. OLOPATADINE HYDROCHLORIDE [Concomitant]
     Indication: EYE ALLERGY
     Route: 031
  10. OLOPATADINE HYDROCHLORIDE [Concomitant]
     Indication: DRY EYE
  11. IRON [Concomitant]
     Indication: BLOOD IRON DECREASED
  12. POTASSIUM [Concomitant]
  13. CALCIUM CARBONATE [Concomitant]
  14. LASIX [Concomitant]
  15. DOCUSATE [Concomitant]
     Indication: CONSTIPATION
  16. PREDNISOLONE [Concomitant]

REACTIONS (1)
  - VISION BLURRED [None]
